FAERS Safety Report 6877762-7 (Version None)
Quarter: 2010Q3

REPORT INFORMATION
  Report Type: 
  Country: None (occurrence: None)
  Receive Date: 20100727
  Receipt Date: 20100629
  Transmission Date: 20110219
  Serious: No
  Sender: FDA-Public Use
  Company Number: US-ABBOTT-10P-163-0655078-00

PATIENT
  Sex: Female
  Weight: 181.6 kg

DRUGS (5)
  1. SYNTHROID [Suspect]
     Indication: HYPOTHYROIDISM
     Dates: start: 20090701
  2. SYNTHROID [Suspect]
     Indication: HYPOTHYROIDISM
  3. METFORMIN HCL [Concomitant]
     Indication: TYPE 2 DIABETES MELLITUS
  4. FLEXERIL [Concomitant]
     Indication: PAIN
  5. VICODIN [Concomitant]
     Indication: PAIN

REACTIONS (4)
  - CRYING [None]
  - DRUG DOSE OMISSION [None]
  - EMOTIONAL DISTRESS [None]
  - ROAD TRAFFIC ACCIDENT [None]
